FAERS Safety Report 10135013 (Version 2)
Quarter: 2015Q1

REPORT INFORMATION
  Report Type: Other
  Country: US (occurrence: US)
  Receive Date: 20140428
  Receipt Date: 20150223
  Transmission Date: 20150720
  Serious: Yes (Hospitalization, Other)
  Sender: FDA-Public Use
  Company Number: US-GSKPPD-2014GSK036001

PATIENT
  Age: 46 Year
  Sex: Male

DRUGS (5)
  1. AVANDIA [Suspect]
     Active Substance: ROSIGLITAZONE MALEATE
     Indication: DIABETES MELLITUS
     Dosage: AVANDIA WAS NOT LISTED AMONG THE PATIENTS RECORDS REVIEWED.
     Route: 048
  2. ENALAPRIL [Concomitant]
     Active Substance: ENALAPRIL
  3. CLONIDINE. [Concomitant]
     Active Substance: CLONIDINE
  4. NIFEDIPINE. [Concomitant]
     Active Substance: NIFEDIPINE
  5. HYDROCHLOROTHIAZIDE. [Concomitant]
     Active Substance: HYDROCHLOROTHIAZIDE

REACTIONS (1)
  - Vertebral artery occlusion [Recovered/Resolved]

NARRATIVE: CASE EVENT DATE: 20060529
